FAERS Safety Report 6208661-1 (Version None)
Quarter: 2009Q2

REPORT INFORMATION
  Report Type: 
  Country: None (occurrence: None)
  Receive Date: 20090529
  Receipt Date: 20090521
  Transmission Date: 20091009
  Serious: Yes (Hospitalization)
  Sender: FDA-Public Use
  Company Number: US-GENENTECH-283707

PATIENT
  Sex: Female

DRUGS (7)
  1. BEVACIZUMAB [Suspect]
     Indication: BREAST CANCER METASTATIC
     Dosage: 886 MG, UNK
     Route: 042
     Dates: start: 20080905
  2. ABRAXANE [Suspect]
     Indication: BREAST CANCER METASTATIC
     Dosage: 291 MG, UNK
     Route: 042
     Dates: start: 20080905
  3. GEMCITABINE [Suspect]
     Indication: BREAST CANCER METASTATIC
     Dosage: 2910 MG, UNK
     Route: 042
     Dates: start: 20080905
  4. ACETAMINOPHEN [Concomitant]
     Indication: DRUG USE FOR UNKNOWN INDICATION
  5. MIDAZOLAM HCL [Concomitant]
     Indication: DRUG USE FOR UNKNOWN INDICATION
  6. FENTANYL-100 [Concomitant]
     Indication: DRUG USE FOR UNKNOWN INDICATION
  7. HEPARIN [Concomitant]
     Indication: DRUG USE FOR UNKNOWN INDICATION

REACTIONS (2)
  - JAUNDICE [None]
  - PYREXIA [None]
